FAERS Safety Report 5106615-X (Version None)
Quarter: 2006Q3

REPORT INFORMATION
  Report Type: 
  Country: None (occurrence: None)
  Receive Date: 20060918
  Receipt Date: 20060727
  Transmission Date: 20061208
  Serious: Yes (Hospitalization, Other)
  Sender: FDA-Public Use
  Company Number: PHMT2006CA01578

PATIENT
  Age: 89 Year
  Sex: Female

DRUGS (7)
  1. FAMVIR [Suspect]
     Indication: HERPES ZOSTER
     Dosage: 500 MG, TID
     Route: 048
     Dates: start: 20060622, end: 20060626
  2. LOSEC [Concomitant]
     Dosage: 20 MG QD
  3. METHOTREXATE [Concomitant]
     Dosage: Q 1 WEEK
  4. ACTONEL [Concomitant]
     Dosage: 35 MG ONCE A WEEK
  5. TIMOPTIC [Concomitant]
  6. ALTACE [Concomitant]
     Dosage: 5 MG QD
  7. HYDROCHLOROTHIAZIDE [Concomitant]
     Dosage: UNK, UNK QD

REACTIONS (5)
  - CONFUSIONAL STATE [None]
  - DELIRIUM [None]
  - DISORIENTATION [None]
  - HEADACHE [None]
  - URINARY TRACT INFECTION [None]
